FAERS Safety Report 7465026-2 (Version None)
Quarter: 2011Q2

REPORT INFORMATION
  Report Type: 
  Country: None (occurrence: None)
  Receive Date: 20110509
  Receipt Date: 20110426
  Transmission Date: 20111010
  Serious: No
  Sender: FDA-Public Use
  Company Number: US-JNJFOC-20110500048

PATIENT
  Sex: Female

DRUGS (2)
  1. FENTANYL [Suspect]
     Indication: PAIN
     Dosage: EVERY 50 TO 55 HOURS
     Route: 062
  2. FENTANYL-100 [Suspect]
     Indication: PAIN
     Dosage: EVERY 50 TO 55 HOURS
     Route: 062

REACTIONS (1)
  - INAPPROPRIATE SCHEDULE OF DRUG ADMINISTRATION [None]
